FAERS Safety Report 4598803-6 (Version None)
Quarter: 2005Q1

REPORT INFORMATION
  Report Type: 
  Country: None (occurrence: None)
  Receive Date: 20050301
  Receipt Date: 20050301
  Transmission Date: 20050727
  Serious: Yes (Hospitalization)
  Sender: FDA-Public Use
  Company Number: None

PATIENT
  Sex: Male

DRUGS (9)
  1. EPTIFIBATIDE [Suspect]
     Indication: MYOCARDIAL INFARCTION
     Dosage: 11.2 MG ONCE IV
     Route: 042
     Dates: start: 20041005, end: 20041005
  2. EPTIFIBATIDE [Suspect]
     Indication: MYOCARDIAL INFARCTION
     Dosage: 5 ML /HR IV
     Route: 042
     Dates: start: 20041005, end: 20041006
  3. CLOPIDOGREL BISULFATE [Concomitant]
  4. ASPIRIN [Concomitant]
  5. SIMVASTATIN [Concomitant]
  6. POTASSIUM CHLORIDE [Concomitant]
  7. RANITIDINE [Concomitant]
  8. LORAZEPAM [Concomitant]
  9. MAGNESIUM SULFATE [Concomitant]

REACTIONS (1)
  - GASTROINTESTINAL HAEMORRHAGE [None]
